FAERS Safety Report 7993318-7 (Version None)
Quarter: 2011Q4

REPORT INFORMATION
  Report Type: 
  Country: None (occurrence: None)
  Receive Date: 20111219
  Receipt Date: 20110816
  Transmission Date: 20120403
  Serious: No
  Sender: FDA-Public Use
  Company Number: US-ASTRAZENECA-2011SE49015

PATIENT
  Age: 64 Year
  Sex: Male
  Weight: 97.1 kg

DRUGS (6)
  1. CELEBREX [Concomitant]
     Indication: PAIN
  2. CRESTOR [Suspect]
     Indication: BLOOD CHOLESTEROL INCREASED
     Route: 048
     Dates: start: 20110801
  3. DILAUDID [Concomitant]
  4. GENUVIA [Concomitant]
     Indication: DIABETIC NEUROPATHY
  5. ATRIPLLA [Concomitant]
     Indication: HIV INFECTION
  6. ACTOS [Concomitant]
     Indication: DIABETIC NEUROPATHY

REACTIONS (5)
  - HOT FLUSH [None]
  - DIZZINESS [None]
  - VISUAL IMPAIRMENT [None]
  - RASH [None]
  - NAUSEA [None]
